FAERS Safety Report 8046471-3 (Version None)
Quarter: 2012Q1

REPORT INFORMATION
  Report Type: 
  Country: None (occurrence: None)
  Receive Date: 20120113
  Receipt Date: 20120108
  Transmission Date: 20120608
  Serious: Yes (Hospitalization)
  Sender: FDA-Public Use
  Company Number: US-ABBOTT-12P-163-0891621-00

PATIENT
  Age: 53 Year
  Sex: Female

DRUGS (9)
  1. MULTI-VITAMIN [Concomitant]
     Indication: PRODUCT USED FOR UNKNOWN INDICATION
  2. HUMIRA [Suspect]
     Indication: COLITIS ULCERATIVE
     Dates: start: 20111016
  3. LIPITOR [Concomitant]
     Indication: BLOOD CHOLESTEROL INCREASED
  4. ZOLOFT [Concomitant]
     Indication: COLITIS ULCERATIVE
  5. HUMIRA [Suspect]
  6. VITAMIN D [Concomitant]
     Indication: PRODUCT USED FOR UNKNOWN INDICATION
  7. ZYRTEC [Concomitant]
     Indication: PRODUCT USED FOR UNKNOWN INDICATION
  8. PREDNISONE [Concomitant]
     Indication: PRODUCT USED FOR UNKNOWN INDICATION
     Dosage: FOR 3 WEEKS THEN ^DOSE STEP DOWN^
  9. CALCIUM [Concomitant]
     Indication: PRODUCT USED FOR UNKNOWN INDICATION

REACTIONS (9)
  - FEELING ABNORMAL [None]
  - BLOOD POTASSIUM DECREASED [None]
  - OFF LABEL USE [None]
  - DRUG EFFECT DELAYED [None]
  - SEPSIS [None]
  - DEHYDRATION [None]
  - BLOOD SODIUM DECREASED [None]
  - COLITIS ULCERATIVE [None]
  - HAEMATOCHEZIA [None]
